FAERS Safety Report 21070271 (Version 2)
Quarter: 2022Q4

REPORT INFORMATION
  Report Type: Spontaneous
  Country: CA (occurrence: CA)
  Receive Date: 20220712
  Receipt Date: 20221130
  Transmission Date: 20230113
  Serious: Yes (Other)
  Sender: FDA-Public Use
  Company Number: CA-VERTEX PHARMACEUTICALS-2022-004063

PATIENT
  Sex: Male
  Weight: 89 kg

DRUGS (2)
  1. TRIKAFTA [Suspect]
     Active Substance: ELEXACAFTOR\IVACAFTOR\TEZACAFTOR
     Indication: Cystic fibrosis
     Dosage: FULL DOSE, BID
     Route: 048
     Dates: start: 20220228, end: 20220306
  2. TRIKAFTA [Suspect]
     Active Substance: ELEXACAFTOR\IVACAFTOR\TEZACAFTOR
     Dosage: 1 ORANGE TABLET IN THE MORNING AND ONE BLUE TABLET IN THE EVENING
     Route: 048
     Dates: start: 20220601

REACTIONS (5)
  - Anxiety [Recovered/Resolved]
  - Irritability [Recovered/Resolved]
  - Frustration tolerance decreased [Recovered/Resolved]
  - Mood swings [Recovered/Resolved]
  - Anger [Recovered/Resolved]

NARRATIVE: CASE EVENT DATE: 20220101
